FAERS Safety Report 8435574-7 (Version None)
Quarter: 2012Q2

REPORT INFORMATION
  Report Type: 
  Country: None (occurrence: None)
  Receive Date: 20120614
  Receipt Date: 20120604
  Transmission Date: 20120825
  Serious: Yes (Life-Threatening, Hospitalization)
  Sender: FDA-Public Use
  Company Number: GB-TEVA-342102ISR

PATIENT
  Age: 56 Year
  Sex: Male

DRUGS (4)
  1. TRAMADOL HCL [Suspect]
     Dosage: 3 GRAM; 60X50MG
     Route: 065
  2. CO-DYDRAMOL [Suspect]
     Dosage: 20X10MG DIHYDROCODEINE/20X500MG PARACETAMOL
     Route: 065
  3. FLUTICASONE PROPIONATE/SALMETEROL [Concomitant]
     Indication: CHRONIC OBSTRUCTIVE PULMONARY DISEASE
     Route: 065
  4. SPIRIVA [Concomitant]
     Indication: CHRONIC OBSTRUCTIVE PULMONARY DISEASE
     Route: 065

REACTIONS (6)
  - MIOSIS [None]
  - MULTIPLE DRUG OVERDOSE [None]
  - INAPPROPRIATE ANTIDIURETIC HORMONE SECRETION [None]
  - SOMNOLENCE [None]
  - HYPONATRAEMIA [None]
  - RESPIRATORY FAILURE [None]
